FAERS Safety Report 8078365-1 (Version None)
Quarter: 2012Q1

REPORT INFORMATION
  Report Type: 
  Country: None (occurrence: None)
  Receive Date: 20120127
  Receipt Date: 20110215
  Transmission Date: 20120608
  Serious: Yes (Hospitalization, Other)
  Sender: FDA-Public Use
  Company Number: US-ABBOTT-10P-163-0676562-00

PATIENT
  Sex: Female
  Weight: 59.02 kg

DRUGS (4)
  1. HUMIRA [Suspect]
     Dates: start: 20100101, end: 20100101
  2. HUMIRA [Suspect]
     Indication: CROHN'S DISEASE
     Dates: start: 20100101, end: 20101001
  3. HUMIRA [Suspect]
     Dosage: LOADING DOSE: 2-40MG INJECTIONS ONCE
     Dates: start: 20100701, end: 20100701
  4. ASACOL [Concomitant]
     Indication: COLITIS

REACTIONS (5)
  - CROHN'S DISEASE [None]
  - RASH GENERALISED [None]
  - APHTHOUS STOMATITIS [None]
  - COLITIS [None]
  - OROPHARYNGEAL BLISTERING [None]
